FAERS Safety Report 7739935-0 (Version None)
Quarter: 2011Q3

REPORT INFORMATION
  Report Type: 
  Country: None (occurrence: None)
  Receive Date: 20110909
  Receipt Date: 20110907
  Transmission Date: 20111222
  Serious: Yes (Death, Hospitalization)
  Sender: FDA-Public Use
  Company Number: PHHY2011GT79652

PATIENT

DRUGS (1)
  1. TRILEPTAL [Suspect]
     Indication: DIABETIC NEUROPATHY
     Dosage: 300 MG, UNK

REACTIONS (1)
  - RENAL FAILURE [None]
